FAERS Safety Report 11629196 (Version 1)
Quarter: 2015Q4

REPORT INFORMATION
  Report Type: Spontaneous
  Country: US (occurrence: US)
  Receive Date: 20151014
  Receipt Date: 20151014
  Transmission Date: 20160304
  Serious: Yes (Hospitalization)
  Sender: FDA-Public Use
  Company Number: US-JNJFOC-20151005777

PATIENT
  Age: 84 Year
  Sex: Female
  Weight: 60.33 kg

DRUGS (3)
  1. REMICADE [Suspect]
     Active Substance: INFLIXIMAB
     Indication: FIBROMYALGIA
     Route: 042
     Dates: start: 20141209, end: 20141209
  2. REMICADE [Suspect]
     Active Substance: INFLIXIMAB
     Indication: POLYMYALGIA RHEUMATICA
     Route: 042
     Dates: start: 20141209, end: 20141209
  3. REMICADE [Suspect]
     Active Substance: INFLIXIMAB
     Indication: TEMPORAL ARTERITIS
     Route: 042
     Dates: start: 20141209, end: 20141209

REACTIONS (9)
  - Pyrexia [Recovered/Resolved]
  - Hypertension [Not Recovered/Not Resolved]
  - Oedema [Not Recovered/Not Resolved]
  - Product use issue [Unknown]
  - Skin haemorrhage [Not Recovered/Not Resolved]
  - Malaise [Recovered/Resolved]
  - Off label use [Unknown]
  - Cellulitis [Recovered/Resolved]
  - Pain [Not Recovered/Not Resolved]

NARRATIVE: CASE EVENT DATE: 201412
